FAERS Safety Report 5134748-0 (Version None)
Quarter: 2006Q4

REPORT INFORMATION
  Report Type: 
  Country: None (occurrence: None)
  Receive Date: 20061025
  Receipt Date: 20060823
  Transmission Date: 20070319
  Serious: Yes (Disabling)
  Sender: FDA-Public Use
  Company Number: GB-AMGEN-UK191208

PATIENT
  Age: 55 Year
  Sex: Male

DRUGS (13)
  1. MIMPARA [Suspect]
     Indication: HYPERPARATHYROIDISM SECONDARY
     Route: 048
     Dates: start: 20050706, end: 20060201
  2. CALCICHEW [Suspect]
     Route: 065
  3. CALCIUM ACETATE [Suspect]
     Route: 065
  4. ALFACALCIDOL [Concomitant]
     Route: 048
     Dates: start: 20060127
  5. ARANESP [Concomitant]
     Route: 042
     Dates: start: 20050902
  6. ASPIRIN [Concomitant]
     Route: 048
     Dates: start: 20010214
  7. CODEINE PHOSPHATE [Concomitant]
     Route: 048
     Dates: start: 20051013
  8. FOLIC ACID [Concomitant]
     Route: 048
     Dates: start: 20001031
  9. GABAPENTIN [Concomitant]
     Route: 048
     Dates: start: 20050603
  10. GEMFIBROZIL [Concomitant]
     Route: 048
     Dates: start: 20000510
  11. LANSOPRAZOLE [Concomitant]
     Route: 048
     Dates: start: 20040206
  12. SEVELAMER HCL [Concomitant]
     Route: 048
     Dates: start: 20060208
  13. VITAMIN B COMPLEX CAP [Concomitant]
     Route: 048
     Dates: start: 20001031

REACTIONS (3)
  - ABDOMINAL DISCOMFORT [None]
  - BLOOD CALCIUM DECREASED [None]
  - DIARRHOEA [None]
